FAERS Safety Report 19274725 (Version 1)
Quarter: 2021Q2

REPORT INFORMATION
  Report Type: Spontaneous
  Country: US (occurrence: US)
  Receive Date: 20210519
  Receipt Date: 20210519
  Transmission Date: 20210717
  Serious: Yes (Other)
  Sender: FDA-Public Use
  Company Number: US-PFIZER INC-2021517034

PATIENT
  Age: 61 Year
  Sex: Female

DRUGS (1)
  1. LYRICA [Suspect]
     Active Substance: PREGABALIN

REACTIONS (5)
  - Diabetes mellitus [Unknown]
  - Migraine [Unknown]
  - Tremor [Unknown]
  - Back pain [Unknown]
  - Parkinson^s disease [Unknown]
